FAERS Safety Report 6396758-5 (Version None)
Quarter: 2009Q4

REPORT INFORMATION
  Report Type: 
  Country: None (occurrence: None)
  Receive Date: 20091012
  Receipt Date: 20090527
  Transmission Date: 20100525
  Serious: No
  Sender: FDA-Public Use
  Company Number: US-ASTRAZENECA-2009UW10049

PATIENT
  Age: 50 Year
  Sex: Male

DRUGS (20)
  1. SYMBICORT [Suspect]
     Indication: ASTHMA
     Dosage: 160/4.5 MCG 2 PUFFS
     Route: 055
     Dates: start: 20081001
  2. PREDNISONE [Concomitant]
  3. SINGULAIR [Concomitant]
  4. REMERON [Concomitant]
  5. SEROQUEL [Concomitant]
     Route: 048
  6. TOPAMAX [Concomitant]
  7. FLONASE [Concomitant]
  8. ZOFRAN [Concomitant]
  9. HYTRIN [Concomitant]
  10. AMBIEN [Concomitant]
  11. PERCOCET [Concomitant]
  12. FELODIPINE [Concomitant]
  13. PRILOSEC [Concomitant]
     Route: 048
  14. DURAGESIC-100 [Concomitant]
  15. FENTANYL [Concomitant]
  16. FLEXERIL [Concomitant]
  17. CIMETIDINE [Concomitant]
  18. DOXYCYCLINE [Concomitant]
  19. GABAPENTIN [Concomitant]
  20. LYRICA [Concomitant]

REACTIONS (2)
  - DYSPNOEA [None]
  - NERVOUSNESS [None]
